FAERS Safety Report 23601504 (Version 2)
Quarter: 2024Q1

REPORT INFORMATION
  Report Type: Spontaneous
  Country: US (occurrence: US)
  Receive Date: 20240306
  Receipt Date: 20240318
  Transmission Date: 20240410
  Serious: Yes (Life-Threatening, Hospitalization, Other)
  Sender: FDA-Public Use
  Company Number: US-AMGEN-USASP2024042746

PATIENT
  Age: 76 Year
  Sex: Female
  Weight: 83.4 kg

DRUGS (7)
  1. ENBREL [Suspect]
     Active Substance: ETANERCEPT
     Indication: Rheumatoid arthritis
     Dosage: UNK, QWK
     Route: 058
     Dates: start: 201806
  2. DUPILUMAB [Suspect]
     Active Substance: DUPILUMAB
     Indication: Sinus polyp degeneration
     Dosage: 300 MILLIGRAM, EVERY OTHER WEEK
     Route: 058
     Dates: start: 20210224
  3. DUPILUMAB [Suspect]
     Active Substance: DUPILUMAB
     Indication: Nasal polyps
  4. METHOTREXATE [Suspect]
     Active Substance: METHOTREXATE
     Indication: Rheumatoid arthritis
     Dosage: 1 TAB ORALY EVERY 3 DAYS
     Route: 065
     Dates: end: 202311
  5. FLUTICASONE PROPIONATE [Concomitant]
     Active Substance: FLUTICASONE PROPIONATE
     Route: 065
  6. SALMETEROL XINAFOATE [Concomitant]
     Active Substance: SALMETEROL XINAFOATE
     Route: 065
  7. SIMPONI [Concomitant]
     Active Substance: GOLIMUMAB

REACTIONS (9)
  - Candida infection [Recovered/Resolved]
  - Sepsis [Recovered/Resolved]
  - Dysphagia [Recovered/Resolved]
  - Ulcer [Recovered/Resolved]
  - Diarrhoea [Recovered/Resolved]
  - Malnutrition [Recovered/Resolved]
  - Herpes virus infection [Unknown]
  - Dyspnoea [Unknown]
  - Immunosuppression [Unknown]

NARRATIVE: CASE EVENT DATE: 20231027
